FAERS Safety Report 6573163-X (Version None)
Quarter: 2010Q1

REPORT INFORMATION
  Report Type: 
  Country: None (occurrence: None)
  Receive Date: 20100208
  Receipt Date: 20100202
  Transmission Date: 20100710
  Serious: Yes (Other)
  Sender: FDA-Public Use
  Company Number: DE-BAYER-201014303GPV

PATIENT
  Age: 62 Year
  Sex: Male

DRUGS (3)
  1. SORAFENIB [Suspect]
     Indication: RENAL CELL CARCINOMA
     Dates: start: 20100102, end: 20100128
  2. PANTOZOL [Concomitant]
     Dates: start: 20100121
  3. AMLODIPINE [Concomitant]
     Dates: start: 20100121, end: 20100202

REACTIONS (2)
  - N-TERMINAL PROHORMONE BRAIN NATRIURETIC PEPTIDE [None]
  - URTICARIA [None]
